FAERS Safety Report 5001552-3 (Version None)
Quarter: 2006Q2

REPORT INFORMATION
  Report Type: 
  Country: None (occurrence: None)
  Receive Date: 20060515
  Receipt Date: 20060504
  Transmission Date: 20061013
  Serious: Yes (Hospitalization)
  Sender: FDA-Public Use
  Company Number: US-KINGPHARMUSA00001-K200600598

PATIENT
  Age: 56 Year
  Sex: Male
  Weight: 98 kg

DRUGS (6)
  1. EPIPEN [Suspect]
     Indication: ALLERGY TO ARTHROPOD STING
     Dosage: .3 MG, THREE TIMES
     Route: 030
     Dates: start: 20040101
  2. XANAX [Concomitant]
     Indication: ANXIETY
     Dosage: 6 MG, QD
     Route: 048
     Dates: start: 20010101
  3. PROTONIX [Concomitant]
     Indication: STOMACH DISCOMFORT
     Dosage: 40 MG, QD
     Route: 048
  4. LEXAPRO [Concomitant]
     Indication: DEPRESSION
     Dosage: 10 MG, QD
     Route: 048
     Dates: start: 19780101
  5. CLONIDINE [Concomitant]
     Indication: HYPERTENSION
     Dosage: .2 MG, QD
     Route: 048
     Dates: start: 20060401
  6. ADDERALL 10 [Concomitant]
     Indication: HYPERTENSION
     Dosage: 25 MG, QD
     Route: 048
     Dates: start: 20050101

REACTIONS (4)
  - BLOOD PRESSURE DECREASED [None]
  - CHEST PAIN [None]
  - DRUG INEFFECTIVE [None]
  - FEELING ABNORMAL [None]
